FAERS Safety Report 6820950-6 (Version None)
Quarter: 2010Q3

REPORT INFORMATION
  Report Type: 
  Country: None (occurrence: None)
  Receive Date: 20100707
  Receipt Date: 20070831
  Transmission Date: 20110219
  Serious: No
  Sender: FDA-Public Use
  Company Number: US-PFIZER INC-2007073438

PATIENT
  Age: 57 Year
  Sex: Female
  Weight: 60.78 kg

DRUGS (2)
  1. ZOLOFT [Suspect]
     Indication: INSOMNIA
  2. TRAZODONE HYDROCHLORIDE [Concomitant]

REACTIONS (2)
  - BREAST PAIN [None]
  - DIARRHOEA [None]
